FAERS Safety Report 10297925 (Version 6)
Quarter: 2016Q1

REPORT INFORMATION
  Report Type: Report from Study
  Country: ES (occurrence: ES)
  Receive Date: 20140711
  Receipt Date: 20160311
  Transmission Date: 20160525
  Serious: Yes (Other)
  Sender: FDA-Public Use
  Company Number: PHHO2014ES009591

PATIENT
  Age: 63 Year
  Sex: Male

DRUGS (1)
  1. FTY [Suspect]
     Active Substance: FINGOLIMOD HYDROCHLORIDE
     Indication: PRIMARY PROGRESSIVE MULTIPLE SCLEROSIS
     Dosage: 0.5 MG, QD
     Route: 048
     Dates: start: 20130617, end: 20140707

REACTIONS (1)
  - B-cell small lymphocytic lymphoma [Not Recovered/Not Resolved]

NARRATIVE: CASE EVENT DATE: 20140619
